FAERS Safety Report 22011238 (Version 1)
Quarter: 2023Q1

REPORT INFORMATION
  Report Type: Spontaneous
  Country: GR (occurrence: GR)
  Receive Date: 20230220
  Receipt Date: 20230220
  Transmission Date: 20230418
  Serious: Yes (Life-Threatening)
  Sender: FDA-Public Use
  Company Number: GR-FreseniusKabi-FK202301913

PATIENT
  Age: 28 Year
  Sex: Female
  Weight: 72 kg

DRUGS (4)
  1. ROPIVACAINE [Suspect]
     Active Substance: ROPIVACAINE
     Indication: Spinal anaesthesia
     Dosage: 7.5  MG/ML
     Route: 065
  2. FENTANYL [Suspect]
     Active Substance: FENTANYL
     Indication: Spinal anaesthesia
     Dosage: 20 MCG
  3. EPHEDRINE [Concomitant]
     Active Substance: EPHEDRINE
     Indication: Hypotension
     Dosage: WAS ADMINISTERED (PRE-ANAESTHESIA BP VALUES 130/60 MMHG)
     Route: 042
  4. Intralipid 20 percent [Concomitant]
     Indication: Product used for unknown indication
     Dosage: FOLLOWED BY DRIP ADMINISTRATION OF 100ML
     Route: 040

REACTIONS (4)
  - Dysphonia [Recovered/Resolved]
  - Dysphagia [Recovered/Resolved]
  - Maternal exposure during delivery [Recovered/Resolved]
  - Anaesthetic complication [Recovered/Resolved]
